FAERS Safety Report 12225344 (Version 1)
Quarter: 2016Q1

REPORT INFORMATION
  Report Type: Spontaneous
  Country: US (occurrence: None)
  Receive Date: 20160330
  Receipt Date: 20160330
  Transmission Date: 20160526
  Serious: No
  Sender: FDA-Public Use
  Company Number: None

PATIENT
  Age: 71 Year
  Sex: Female

DRUGS (1)
  1. AMPYRA [Suspect]
     Active Substance: DALFAMPRIDINE
     Indication: MULTIPLE SCLEROSIS
     Route: 048
     Dates: start: 20141219

REACTIONS (6)
  - Multiple sclerosis relapse [None]
  - Muscular weakness [None]
  - Red blood cell count decreased [None]
  - Haemoglobin decreased [None]
  - White blood cell count increased [None]
  - Haematocrit decreased [None]

NARRATIVE: CASE EVENT DATE: 20160202
